FAERS Safety Report 16464468 (Version 4)
Quarter: 2019Q4

REPORT INFORMATION
  Report Type: Spontaneous
  Country: US (occurrence: US)
  Receive Date: 20190621
  Receipt Date: 20191105
  Transmission Date: 20200122
  Serious: Yes (Death, Other)
  Sender: FDA-Public Use
  Company Number: US-ASTRAZENECA-2018SF66053

PATIENT
  Sex: Female

DRUGS (49)
  1. PRILOSEC [Suspect]
     Active Substance: OMEPRAZOLE MAGNESIUM
     Indication: GASTROOESOPHAGEAL REFLUX DISEASE
     Route: 048
  2. PROTONIX [Suspect]
     Active Substance: PANTOPRAZOLE SODIUM
     Indication: GASTROOESOPHAGEAL REFLUX DISEASE
     Route: 065
  3. LANSOPRAZOLE. [Suspect]
     Active Substance: LANSOPRAZOLE
     Indication: GASTROOESOPHAGEAL REFLUX DISEASE
     Route: 065
     Dates: start: 20120627, end: 20140211
  4. PEPCID AC [Concomitant]
     Active Substance: FAMOTIDINE
  5. DOXYCYCLINE. [Concomitant]
     Active Substance: DOXYCYCLINE
  6. PULMICORT TURBUHALER [Concomitant]
     Active Substance: BUDESONIDE
  7. METFORMIN [Concomitant]
     Active Substance: METFORMIN HYDROCHLORIDE
  8. CIPROFLOXACIN. [Concomitant]
     Active Substance: CIPROFLOXACIN
  9. NEXIUM [Suspect]
     Active Substance: ESOMEPRAZOLE MAGNESIUM
     Indication: GASTROOESOPHAGEAL REFLUX DISEASE
     Route: 048
  10. NEXIUM [Suspect]
     Active Substance: ESOMEPRAZOLE MAGNESIUM
     Indication: GASTROOESOPHAGEAL REFLUX DISEASE
     Route: 048
     Dates: start: 20110104, end: 20120618
  11. NEXIUM [Suspect]
     Active Substance: ESOMEPRAZOLE MAGNESIUM
     Indication: GASTROOESOPHAGEAL REFLUX DISEASE
     Route: 048
     Dates: start: 20120319
  12. TRAMADOL. [Concomitant]
     Active Substance: TRAMADOL
  13. TIZANIDINE. [Concomitant]
     Active Substance: TIZANIDINE
  14. ZANTAC [Concomitant]
     Active Substance: RANITIDINE HYDROCHLORIDE
  15. NEXIUM [Suspect]
     Active Substance: ESOMEPRAZOLE MAGNESIUM
     Indication: GASTROOESOPHAGEAL REFLUX DISEASE
     Route: 048
     Dates: start: 20110129
  16. PREDNISONE. [Concomitant]
     Active Substance: PREDNISONE
  17. SPIRONOLACTONE. [Concomitant]
     Active Substance: SPIRONOLACTONE
  18. IPRATROPIUM [Concomitant]
     Active Substance: IPRATROPIUM
  19. LEVEMIR [Concomitant]
     Active Substance: INSULIN DETEMIR
  20. WARFARIN [Concomitant]
     Active Substance: WARFARIN
  21. NEXIUM [Suspect]
     Active Substance: ESOMEPRAZOLE MAGNESIUM
     Indication: GASTROOESOPHAGEAL REFLUX DISEASE
     Route: 048
     Dates: start: 20110104, end: 20120618
  22. NEXIUM [Suspect]
     Active Substance: ESOMEPRAZOLE MAGNESIUM
     Indication: GASTROOESOPHAGEAL REFLUX DISEASE
     Route: 048
     Dates: start: 20110530
  23. NEXIUM [Suspect]
     Active Substance: ESOMEPRAZOLE MAGNESIUM
     Indication: GASTROOESOPHAGEAL REFLUX DISEASE
     Route: 048
     Dates: start: 20110530
  24. TAGAMET HB [Concomitant]
     Active Substance: CIMETIDINE
  25. METOLAZONE. [Concomitant]
     Active Substance: METOLAZONE
  26. SIMVASTATIN. [Concomitant]
     Active Substance: SIMVASTATIN
  27. AMOXICILLIN. [Concomitant]
     Active Substance: AMOXICILLIN
  28. NYSTATIN. [Concomitant]
     Active Substance: NYSTATIN
  29. LOSARTAN POTASSIUM. [Concomitant]
     Active Substance: LOSARTAN POTASSIUM
  30. NOVOLOG [Concomitant]
     Active Substance: INSULIN ASPART
     Indication: DIABETES MELLITUS
  31. METOPROLOL. [Concomitant]
     Active Substance: METOPROLOL
  32. FUROSEMIDE. [Concomitant]
     Active Substance: FUROSEMIDE
  33. FLUTICASONE. [Concomitant]
     Active Substance: FLUTICASONE
  34. NEXIUM [Suspect]
     Active Substance: ESOMEPRAZOLE MAGNESIUM
     Indication: GASTROOESOPHAGEAL REFLUX DISEASE
     Route: 048
     Dates: start: 20110129
  35. ALBUTEROL. [Concomitant]
     Active Substance: ALBUTEROL
  36. LOSARTAN. [Concomitant]
     Active Substance: LOSARTAN
  37. FENOFIBRATE. [Concomitant]
     Active Substance: FENOFIBRATE
  38. CITALOPRAM [Concomitant]
     Active Substance: CITALOPRAM HYDROBROMIDE
     Indication: ANTIDEPRESSANT DRUG LEVEL
     Route: 065
     Dates: start: 20110123, end: 20140211
  39. NEXIUM [Suspect]
     Active Substance: ESOMEPRAZOLE MAGNESIUM
     Indication: GASTROOESOPHAGEAL REFLUX DISEASE
     Route: 048
     Dates: start: 20120319
  40. LEVOTHYROXINE. [Concomitant]
     Active Substance: LEVOTHYROXINE
  41. DILTIAZEM. [Concomitant]
     Active Substance: DILTIAZEM
  42. NEXIUM [Suspect]
     Active Substance: ESOMEPRAZOLE MAGNESIUM
     Indication: GASTROOESOPHAGEAL REFLUX DISEASE
     Route: 048
  43. PRILOSEC [Suspect]
     Active Substance: OMEPRAZOLE MAGNESIUM
     Indication: GASTROOESOPHAGEAL REFLUX DISEASE
     Dosage: GENERIC 20MG DAILY
     Route: 065
     Dates: start: 2012, end: 2017
  44. PROTONIX [Suspect]
     Active Substance: PANTOPRAZOLE SODIUM
     Indication: GASTROOESOPHAGEAL REFLUX DISEASE
     Dosage: GENERIC 40 MG DAILY
     Route: 065
     Dates: end: 201703
  45. ADVAIR HFA [Concomitant]
     Active Substance: FLUTICASONE PROPIONATE\SALMETEROL XINAFOATE
  46. SINGULAIR [Concomitant]
     Active Substance: MONTELUKAST SODIUM
  47. CARVEDILOL. [Concomitant]
     Active Substance: CARVEDILOL
  48. CEFDINIR. [Concomitant]
     Active Substance: CEFDINIR
  49. CEPHALEXIN. [Concomitant]
     Active Substance: CEPHALEXIN

REACTIONS (5)
  - Death [Fatal]
  - End stage renal disease [Not Recovered/Not Resolved]
  - Rebound acid hypersecretion [Unknown]
  - Renal failure [Not Recovered/Not Resolved]
  - Renal injury [Unknown]
